FAERS Safety Report 22172913 (Version 1)
Quarter: 2023Q2

REPORT INFORMATION
  Report Type: Spontaneous
  Country: None (occurrence: HR)
  Receive Date: 20230404
  Receipt Date: 20230404
  Transmission Date: 20230722
  Serious: Yes (Death, Other)
  Sender: FDA-Public Use
  Company Number: HR-B.Braun Medical Inc.-2139878

PATIENT
  Age: 81 Year
  Sex: Female

DRUGS (5)
  1. ACETAMINOPHEN [Suspect]
     Active Substance: ACETAMINOPHEN
     Route: 042
     Dates: start: 20221130
  2. LORAZEPAM [Suspect]
     Active Substance: LORAZEPAM
  3. SULPIRIDE [Suspect]
     Active Substance: SULPIRIDE
  4. DOXYCYCLINE [Suspect]
     Active Substance: DOXYCYCLINE
  5. QUETIAPINE [Suspect]
     Active Substance: QUETIAPINE

REACTIONS (8)
  - Tachycardia [Fatal]
  - Pneumonia [Fatal]
  - Vomiting [Fatal]
  - Speech disorder [Fatal]
  - Cystitis [Fatal]
  - Diarrhoea [Fatal]
  - Amnesia [Fatal]
  - Pyrexia [Fatal]
